FAERS Safety Report 9054629 (Version 2)
Quarter: 2013Q1

REPORT INFORMATION
  Report Type: Report from Study
  Country: FR (occurrence: FR)
  Receive Date: 20130208
  Receipt Date: 20130314
  Transmission Date: 20140127
  Serious: Yes (Hospitalization, Disabling)
  Sender: FDA-Public Use
  Company Number: FR-BAYER-2013-014733

PATIENT
  Age: 82 Year
  Sex: Male

DRUGS (8)
  1. REGORAFENIB [Suspect]
     Indication: COLORECTAL CANCER METASTATIC
     Dosage: DAILY DOSE 160 MG
     Route: 048
     Dates: start: 20130110, end: 20130122
  2. PARACETAMOL [Concomitant]
     Dosage: DAILY DOSE 1 G
  3. FLECAINE [Concomitant]
  4. KARDEGIC [Concomitant]
     Dosage: 75 MG, QD
  5. AVODART [Concomitant]
     Dosage: UNK
  6. OMIX [Concomitant]
     Dosage: 1 DF, QD
  7. KESTIN [Concomitant]
  8. HECAINE [Concomitant]

REACTIONS (4)
  - Confusional state [Not Recovered/Not Resolved]
  - Cognitive disorder [Not Recovered/Not Resolved]
  - Amnestic disorder [Not Recovered/Not Resolved]
  - Hallucination [Not Recovered/Not Resolved]
